FAERS Safety Report 6853351-5 (Version None)
Quarter: 2010Q3

REPORT INFORMATION
  Report Type: 
  Country: None (occurrence: None)
  Receive Date: 20100717
  Receipt Date: 20071206
  Transmission Date: 20110219
  Serious: Yes (Other)
  Sender: FDA-Public Use
  Company Number: US-PFIZER INC-2007104237

PATIENT
  Sex: Male
  Weight: 93.181 kg

DRUGS (2)
  1. CHANTIX [Suspect]
     Indication: SMOKING CESSATION THERAPY
     Dosage: EVERY DAY
     Route: 048
     Dates: start: 20070901, end: 20071101
  2. CHANTIX [Suspect]
     Indication: TOBACCO USER

REACTIONS (2)
  - ABNORMAL DREAMS [None]
  - SUICIDAL IDEATION [None]
